FAERS Safety Report 15220534 (Version 1)
Quarter: 2018Q4

REPORT INFORMATION
  Report Type: Spontaneous
  Country: FR (occurrence: FR)
  Receive Date: 20180731
  Receipt Date: 20180731
  Transmission Date: 20190204
  Serious: Yes (Hospitalization)
  Sender: FDA-Public Use
  Company Number: FR-MYLANLABS-2018M1058613

PATIENT
  Age: 63 Year
  Sex: Female

DRUGS (2)
  1. VANCOMYCINE MYLAN 250 MG, POUDRE POUR SOLUTION POUR PERFUSION (IV) [Suspect]
     Active Substance: VANCOMYCIN
     Indication: CLOSTRIDIUM TEST POSITIVE
     Dosage: 1000 MG, QD
     Dates: start: 20180114
  2. PIPERACILLIN/TAZOBACTAM PANPHARMA [Suspect]
     Active Substance: PIPERACILLIN SODIUM\TAZOBACTAM SODIUM
     Indication: ERYSIPELAS
     Dosage: 12 G, QD
     Route: 042
     Dates: start: 20180113, end: 20180130

REACTIONS (2)
  - Cell death [Unknown]
  - Cholestasis [Unknown]

NARRATIVE: CASE EVENT DATE: 20180125
